FAERS Safety Report 4440293-8 (Version None)
Quarter: 2004Q3

REPORT INFORMATION
  Report Type: 
  Country: None (occurrence: None)
  Receive Date: 20040831
  Receipt Date: 20040831
  Transmission Date: 20050211
  Serious: Yes (Life-Threatening)
  Sender: FDA-Public Use
  Company Number: None

PATIENT
  Sex: Female
  Weight: 48.5 kg

DRUGS (8)
  1. CYCLOSPORINE [Suspect]
     Indication: IMMUNOSUPPRESSANT DRUG THERAPY
     Dosage: 5 MG/HR COUNTINUOUS IV
     Route: 042
     Dates: start: 20030326, end: 20030330
  2. CEFEPIME [Concomitant]
  3. VANCOMYCIN [Concomitant]
  4. GANCICLOVIR [Concomitant]
  5. CYTOGAM [Concomitant]
  6. METHYLPREDNISOLONE [Concomitant]
  7. AZATHIOPRINE [Concomitant]
  8. CIPROFLOXACIN [Concomitant]

REACTIONS (2)
  - CONVULSION [None]
  - HEMIPARESIS [None]
